FAERS Safety Report 16795473 (Version 1)
Quarter: 2019Q3

REPORT INFORMATION
  Report Type: Spontaneous
  Country: US (occurrence: US)
  Receive Date: 20190911
  Receipt Date: 20190911
  Transmission Date: 20191005
  Serious: Yes (Hospitalization)
  Sender: FDA-Public Use
  Company Number: US-JNJFOC-20190908825

PATIENT
  Age: 56 Year
  Sex: Male
  Weight: 84.44 kg

DRUGS (2)
  1. INVOKANA [Suspect]
     Active Substance: CANAGLIFLOZIN
     Indication: DIABETES MELLITUS INADEQUATE CONTROL
     Route: 048
  2. INVOKAMET [Suspect]
     Active Substance: CANAGLIFLOZIN\METFORMIN HYDROCHLORIDE
     Indication: DIABETES MELLITUS INADEQUATE CONTROL
     Route: 048
     Dates: start: 20171212

REACTIONS (4)
  - Osteomyelitis [Unknown]
  - Gas gangrene [Unknown]
  - Skin ulcer [Unknown]
  - Foot amputation [Unknown]

NARRATIVE: CASE EVENT DATE: 201712
